FAERS Safety Report 20579932 (Version 1)
Quarter: 2022Q1

REPORT INFORMATION
  Report Type: Spontaneous
  Country: US (occurrence: US)
  Receive Date: 20220310
  Receipt Date: 20220310
  Transmission Date: 20220423
  Serious: No
  Sender: FDA-Public Use
  Company Number: US-AMGEN-USASP2022038638

PATIENT
  Age: 59 Year
  Sex: Female

DRUGS (1)
  1. MVASI [Suspect]
     Active Substance: BEVACIZUMAB-AWWB
     Indication: Colorectal cancer metastatic
     Dosage: 390 MILLIGRAM, Q2WK
     Route: 065
     Dates: start: 20210820

REACTIONS (1)
  - Epistaxis [Unknown]
